FAERS Safety Report 7425411 (Version 4)
Quarter: 2016Q3

REPORT INFORMATION
  Report Type: Spontaneous
  Country: JP (occurrence: JP)
  Receive Date: 20100618
  Receipt Date: 20160929
  Transmission Date: 20161109
  Serious: Yes (Life-Threatening, Other)
  Sender: FDA-Public Use
  Company Number: JP-ROCHE-709673

PATIENT
  Age: 55 Year
  Sex: Male
  Weight: 75 kg

DRUGS (12)
  1. NAUZELIN [Concomitant]
     Active Substance: DOMPERIDONE
     Dosage: DOSAGE IS UNCERTAIN
     Route: 048
  2. POSTERISAN [Concomitant]
     Active Substance: LIDOCAINE
     Dosage: DOSAGE IS UNCERTAIN
     Route: 061
  3. IRINOTECAN HYDROCHLORIDE. [Suspect]
     Active Substance: IRINOTECAN HYDROCHLORIDE
     Indication: RECTAL CANCER METASTATIC
     Dosage: NOTE: DOSAGE IS UNCERTAIN.
     Route: 041
     Dates: start: 20080723, end: 20090527
  4. BUSCOPAN [Concomitant]
     Active Substance: BUTYLSCOPOLAMINE BROMIDE
     Dosage: DOSE IS UNCERTAIN
     Route: 048
  5. MAGNESIUM OXIDE. [Concomitant]
     Active Substance: MAGNESIUM OXIDE
     Dosage: DOSAGE IS UNCERTAIN
     Route: 048
  6. SAHNE [Concomitant]
     Dosage: DOSAGE IS UNCERTAIN.
     Route: 003
  7. 5-FU [Concomitant]
     Active Substance: FLUOROURACIL
     Indication: RECTAL CANCER METASTATIC
     Dosage: DOSAGE IS UNCERTAIN.
     Route: 040
     Dates: start: 20080623, end: 20090527
  8. CALCIUM LEVOFOLINATE [Concomitant]
     Active Substance: LEVOLEUCOVORIN CALCIUM
     Indication: RECTAL CANCER METASTATIC
     Dosage: NOTE: DOSAGE IS UNCERTAIN.
     Route: 041
     Dates: start: 20080723, end: 20090527
  9. LOXONIN [Concomitant]
     Active Substance: LOXOPROFEN SODIUM
     Dosage: DOSAGE IS UNCERTAIN
     Route: 048
  10. 5-FU [Concomitant]
     Active Substance: FLUOROURACIL
     Indication: RECTAL CANCER METASTATIC
     Dosage: DOSAGE IS UNCERTAIN.
     Route: 041
     Dates: start: 20080723, end: 20090527
  11. AVASTIN [Suspect]
     Active Substance: BEVACIZUMAB
     Indication: RECTAL CANCER METASTATIC
     Dosage: NOTE: DOSAGE IS UNCERTAIN.
     Route: 041
     Dates: start: 20080723, end: 20090527
  12. CRAVIT [Concomitant]
     Active Substance: LEVOFLOXACIN
     Dosage: DOSE IS UNCERTAIN
     Route: 048

REACTIONS (6)
  - Liver disorder [Recovering/Resolving]
  - Impaired healing [Unknown]
  - White blood cell count decreased [Recovered/Resolved]
  - Pyrexia [Recovering/Resolving]
  - Hyperbilirubinaemia [Recovered/Resolved]
  - Staphylococcal infection [Recovering/Resolving]

NARRATIVE: CASE EVENT DATE: 2009
